FAERS Safety Report 8328751-7 (Version None)
Quarter: 2012Q2

REPORT INFORMATION
  Report Type: 
  Country: None (occurrence: None)
  Receive Date: 20120502
  Receipt Date: 20120406
  Transmission Date: 20120825
  Serious: Yes (Life-Threatening, Hospitalization)
  Sender: FDA-Public Use
  Company Number: US-US-EMD SERONO, INC.-7124415

PATIENT
  Sex: Male

DRUGS (6)
  1. NAPROXEN (ALEVE) [Concomitant]
     Indication: BACK DISORDER
  2. EGRIFTA [Suspect]
     Indication: LIPODYSTROPHY ACQUIRED
     Dates: start: 20110101
  3. SEROSTIM [Suspect]
     Indication: PRODUCT USED FOR UNKNOWN INDICATION
     Dates: start: 20120101
  4. ASPIRIN [Concomitant]
     Indication: PRODUCT USED FOR UNKNOWN INDICATION
  5. EPIDURAL [Concomitant]
     Indication: BACK DISORDER
  6. TESTIM [Concomitant]
     Indication: PRODUCT USED FOR UNKNOWN INDICATION

REACTIONS (5)
  - DIEULAFOY'S VASCULAR MALFORMATION [None]
  - IRON DEFICIENCY ANAEMIA [None]
  - CARPAL TUNNEL SYNDROME [None]
  - RESPIRATORY FAILURE [None]
  - MALFORMATION VENOUS [None]
